FAERS Safety Report 6678856-1 (Version None)
Quarter: 2010Q2

REPORT INFORMATION
  Report Type: 
  Country: None (occurrence: None)
  Receive Date: 20100412
  Receipt Date: 20100412
  Transmission Date: 20101027
  Serious: Yes (Other)
  Sender: FDA-Public Use
  Company Number: None

PATIENT
  Age: 69 Year
  Sex: Male
  Weight: 90.7194 kg

DRUGS (1)
  1. CRESTOR [Suspect]
     Indication: BLOOD CHOLESTEROL INCREASED
     Dosage: 10 MG DAY OTIC
     Dates: start: 20090501, end: 20100410

REACTIONS (5)
  - AMNESIA [None]
  - BALANCE DISORDER [None]
  - GASTRIC PH DECREASED [None]
  - MUSCLE SPASMS [None]
  - TREMOR [None]
